FAERS Safety Report 6183057-X (Version None)
Quarter: 2009Q2

REPORT INFORMATION
  Report Type: 
  Country: None (occurrence: None)
  Receive Date: 20090507
  Receipt Date: 20090428
  Transmission Date: 20091009
  Serious: No
  Sender: FDA-Public Use
  Company Number: JP-ELI_LILLY_AND_COMPANY-JP200903001788

PATIENT
  Age: 55 Year
  Sex: Female

DRUGS (6)
  1. ZYPREXA [Suspect]
     Indication: DEPRESSION
     Dosage: 5 MG, DAILY (1/D)
     Route: 048
     Dates: start: 20080919, end: 20081014
  2. ZYPREXA [Suspect]
     Dosage: 2.5 MG, DAILY (1/D)
     Route: 048
     Dates: start: 20081007, end: 20081014
  3. TETRAMIDE [Concomitant]
     Indication: DEPRESSIVE SYMPTOM
     Dosage: 10 MG, DAILY (1/D)
     Route: 048
     Dates: start: 20080919, end: 20081012
  4. DESYREL [Concomitant]
     Indication: DEPRESSIVE SYMPTOM
     Dosage: 25 MG, DAILY (1/D)
     Route: 048
     Dates: start: 20080919
  5. BENZALIN [Concomitant]
     Indication: INSOMNIA
     Dosage: 5 MG, DAILY (1/D)
     Route: 048
     Dates: start: 20080919
  6. LORAZEPAM [Concomitant]
     Indication: ANXIETY
     Dosage: 0.5 MG, DAILY (1/D)
     Route: 048
     Dates: start: 20080919

REACTIONS (1)
  - LIVER DISORDER [None]
